FAERS Safety Report 24435377 (Version 1)
Quarter: 2024Q4

REPORT INFORMATION
  Report Type: Spontaneous
  Country: PL (occurrence: PL)
  Receive Date: 20241015
  Receipt Date: 20241015
  Transmission Date: 20250114
  Serious: Yes (Hospitalization)
  Sender: ACCORD
  Company Number: None

PATIENT
  Age: 53 Year
  Sex: Male
  Weight: 160 kg

DRUGS (10)
  1. FUROSEMIDE [Suspect]
     Active Substance: FUROSEMIDE
     Indication: Cardiac failure
     Dosage: 3X1 AMP. IV AND ORALLY
     Dates: start: 20200206, end: 20200213
  2. GENTAMICIN [Suspect]
     Active Substance: GENTAMICIN
     Indication: Chronic obstructive pulmonary disease
     Dates: start: 20200211, end: 20200219
  3. VINPOCETINE [Concomitant]
     Active Substance: VINPOCETINE
  4. ACETYLCYSTEINE [Concomitant]
     Active Substance: ACETYLCYSTEINE
  5. BENSERAZIDE HYDROCHLORIDE\LEVODOPA [Concomitant]
     Active Substance: BENSERAZIDE HYDROCHLORIDE\LEVODOPA
  6. FENOTEROL HYDROBROMIDE\IPRATROPIUM BROMIDE [Concomitant]
     Active Substance: FENOTEROL HYDROBROMIDE\IPRATROPIUM BROMIDE
  7. POTASSIUM CHLORIDE [Concomitant]
     Active Substance: POTASSIUM CHLORIDE
  8. BUDESONIDE [Concomitant]
     Active Substance: BUDESONIDE
  9. NITRENDIPINE [Concomitant]
     Active Substance: NITRENDIPINE
  10. BISOPROLOL [Concomitant]
     Active Substance: BISOPROLOL\BISOPROLOL FUMARATE

REACTIONS (1)
  - Acute kidney injury [Recovering/Resolving]
